FAERS Safety Report 7062104-7 (Version None)
Quarter: 2010Q4

REPORT INFORMATION
  Report Type: 
  Country: None (occurrence: None)
  Receive Date: 20101026
  Receipt Date: 20101013
  Transmission Date: 20110411
  Serious: Yes (Other)
  Sender: FDA-Public Use
  Company Number: PHHY2010JP60111

PATIENT
  Sex: Male
  Weight: 61 kg

DRUGS (4)
  1. ZOMETA [Suspect]
     Indication: BONE LESION
     Dosage: 4 MG, UNK
     Route: 041
     Dates: start: 20061202, end: 20100612
  2. PREDNISOLONE [Concomitant]
     Indication: MULTIPLE MYELOMA
     Dosage: 10 MG, UNK
     Route: 048
     Dates: start: 20081203
  3. PREDNISOLONE [Concomitant]
     Dosage: 20 MG, UNK
     Route: 048
  4. PREDNISOLONE [Concomitant]
     Dosage: 15 MG, UNK
     Route: 048

REACTIONS (4)
  - BONE DISORDER [None]
  - OSTEOMYELITIS [None]
  - OSTEONECROSIS OF JAW [None]
  - WOUND DEHISCENCE [None]
